FAERS Safety Report 19775680 (Version 2)
Quarter: 2021Q4

REPORT INFORMATION
  Report Type: Spontaneous
  Country: US (occurrence: US)
  Receive Date: 20210901
  Receipt Date: 20211006
  Transmission Date: 20220303
  Serious: No
  Sender: FDA-Public Use
  Company Number: US-GRANULES-US-2021GRASPO00458

PATIENT
  Sex: Female

DRUGS (1)
  1. CLOTRIMAZOLE [Suspect]
     Active Substance: CLOTRIMAZOLE
     Indication: Product used for unknown indication
     Dosage: SOLUTION
     Route: 001
     Dates: start: 20210814

REACTIONS (3)
  - Product packaging issue [Unknown]
  - Incorrect dose administered by product [Unknown]
  - Product use issue [Unknown]

NARRATIVE: CASE EVENT DATE: 20210814
